FAERS Safety Report 13820293 (Version 2)
Quarter: 2017Q3

REPORT INFORMATION
  Report Type: Report from Study
  Country: None (occurrence: CO)
  Receive Date: 20170801
  Receipt Date: 20170801
  Transmission Date: 20171127
  Serious: Yes (Hospitalization)
  Sender: FDA-Public Use
  Company Number: CO-ABBVIE-17K-036-2056204-00

PATIENT
  Age: 72 Year
  Sex: Male
  Weight: 66 kg

DRUGS (3)
  1. CLOBETASOL [Concomitant]
     Active Substance: CLOBETASOL
     Indication: PRODUCT USED FOR UNKNOWN INDICATION
  2. PREDNISOLONE. [Concomitant]
     Active Substance: PREDNISOLONE
     Indication: PRODUCT USED FOR UNKNOWN INDICATION
  3. HUMIRA [Suspect]
     Active Substance: ADALIMUMAB
     Indication: PSORIASIS
     Route: 058
     Dates: start: 20110303, end: 20170615

REACTIONS (2)
  - Osteoarthritis [Recovered/Resolved]
  - Postoperative wound complication [Unknown]

NARRATIVE: CASE EVENT DATE: 2017
